FAERS Safety Report 20258588 (Version 1)
Quarter: 2021Q4

REPORT INFORMATION
  Report Type: Spontaneous
  Country: US (occurrence: US)
  Receive Date: 20211230
  Receipt Date: 20211230
  Transmission Date: 20220303
  Serious: No
  Sender: FDA-Public Use
  Company Number: US-KARYOPHARM-2021KPT001558

PATIENT

DRUGS (12)
  1. XPOVIO [Suspect]
     Active Substance: SELINEXOR
     Indication: Plasma cell myeloma
     Dosage: 40 MG, WEEKLY
     Route: 048
     Dates: start: 20211204, end: 202112
  2. ZOVIRAX [Concomitant]
     Active Substance: ACYCLOVIR
  3. KYPROLIS [Concomitant]
     Active Substance: CARFILZOMIB
  4. DEXAMETHASONE [Concomitant]
     Active Substance: DEXAMETHASONE
  5. OXYCODONE [Concomitant]
     Active Substance: OXYCODONE
  6. ZOFRAN [Concomitant]
     Active Substance: ONDANSETRON HYDROCHLORIDE
  7. PROCHLORPERAZINE [Concomitant]
     Active Substance: PROCHLORPERAZINE
  8. AZITHROMYCIN [Concomitant]
     Active Substance: AZITHROMYCIN
  9. POMALYST [Concomitant]
     Active Substance: POMALIDOMIDE
  10. ZOMETA [Concomitant]
     Active Substance: ZOLEDRONIC ACID
  11. EMLA [Concomitant]
     Active Substance: LIDOCAINE\PRILOCAINE
  12. ALTEPLASE [Concomitant]
     Active Substance: ALTEPLASE

REACTIONS (4)
  - Nausea [Unknown]
  - Fatigue [Unknown]
  - Weight decreased [Unknown]
  - Asthenia [Unknown]

NARRATIVE: CASE EVENT DATE: 20211201
